FAERS Safety Report 12745503 (Version 1)
Quarter: 2016Q3

REPORT INFORMATION
  Report Type: Spontaneous
  Country: US (occurrence: US)
  Receive Date: 20160915
  Receipt Date: 20160915
  Transmission Date: 20161109
  Serious: No
  Sender: FDA-Public Use
  Company Number: US-PFIZER INC-2016430341

PATIENT
  Sex: Female

DRUGS (1)
  1. ZOLOFT [Suspect]
     Active Substance: SERTRALINE HYDROCHLORIDE
     Indication: POST-TRAUMATIC STRESS DISORDER
     Dosage: 150 MG, DAILY

REACTIONS (8)
  - Nervousness [Unknown]
  - Fear [Unknown]
  - Drug dose omission [Unknown]
  - Anxiety [Unknown]
  - Tremor [Unknown]
  - Activities of daily living impaired [Unknown]
  - Palpitations [Unknown]
  - Fatigue [Unknown]
